FAERS Safety Report 5588394-5 (Version None)
Quarter: 2008Q1

REPORT INFORMATION
  Report Type: 
  Country: None (occurrence: None)
  Receive Date: 20080111
  Receipt Date: 20071107
  Transmission Date: 20080703
  Serious: No
  Sender: FDA-Public Use
  Company Number: A0692273A

PATIENT
  Age: 83 Year
  Sex: Female

DRUGS (5)
  1. TYKERB [Suspect]
     Indication: BREAST CANCER
     Dosage: 250MG PER DAY
     Route: 048
     Dates: start: 20071008
  2. XELODA [Concomitant]
  3. DIOVAN [Concomitant]
  4. PINDOLOL [Concomitant]
  5. FOSAMAX [Concomitant]

REACTIONS (4)
  - DECREASED APPETITE [None]
  - ERYTHEMA [None]
  - HYPERAESTHESIA [None]
  - ONYCHOCLASIS [None]
